FAERS Safety Report 8498909-5 (Version None)
Quarter: 2012Q3

REPORT INFORMATION
  Report Type: 
  Country: None (occurrence: None)
  Receive Date: 20120710
  Receipt Date: 20120628
  Transmission Date: 20120928
  Serious: No
  Sender: FDA-Public Use
  Company Number: US-BIOGENIDEC-2012BI023265

PATIENT
  Sex: Female

DRUGS (3)
  1. TYSABRI [Suspect]
     Indication: MULTIPLE SCLEROSIS
     Route: 042
     Dates: start: 20061024, end: 20080731
  2. TYSABRI [Suspect]
     Route: 042
     Dates: start: 20110127
  3. TYSABRI [Suspect]
     Route: 042
     Dates: start: 20090130, end: 20100426

REACTIONS (1)
  - DIZZINESS [None]
